FAERS Safety Report 19942114 (Version 1)
Quarter: 2021Q4

REPORT INFORMATION
  Report Type: Spontaneous
  Country: US (occurrence: US)
  Receive Date: 20211011
  Receipt Date: 20211011
  Transmission Date: 20220303
  Serious: Yes (Death)
  Sender: FDA-Public Use
  Company Number: None

PATIENT
  Age: 36 Year
  Sex: Male
  Weight: 49.4 kg

DRUGS (3)
  1. DOMPERIDONE [Suspect]
     Active Substance: DOMPERIDONE
     Indication: Impaired gastric emptying
     Route: 048
     Dates: start: 20210528, end: 20210814
  2. Creon 36000-114000-180000 [Concomitant]
  3. Zofran 4 mg [Concomitant]

REACTIONS (2)
  - Electrocardiogram QT prolonged [None]
  - Arrhythmia [None]

NARRATIVE: CASE EVENT DATE: 20210814
